FAERS Safety Report 5125083-5 (Version None)
Quarter: 2006Q4

REPORT INFORMATION
  Report Type: 
  Country: None (occurrence: None)
  Receive Date: 20061010
  Receipt Date: 20061010
  Transmission Date: 20070319
  Serious: Yes (Hospitalization)
  Sender: FDA-Public Use
  Company Number: None

PATIENT
  Age: 51 Year
  Sex: Male

DRUGS (8)
  1. TRAMADOL HCL [Suspect]
     Indication: PAIN
     Dosage: 100 MG BID PRN
     Dates: start: 20050201
  2. SERTRALINE [Suspect]
     Indication: DEPRESSION
     Dosage: 200 MG QD
     Dates: start: 20051001
  3. SEROQUEL [Concomitant]
  4. METHOCARBAMOL [Concomitant]
  5. ETODOLAC [Concomitant]
  6. LISINOPRIL [Concomitant]
  7. METOPROLOL TARTRATE [Concomitant]
  8. ZOCOR [Concomitant]

REACTIONS (1)
  - SYNCOPE [None]
